FAERS Safety Report 8502436-6 (Version None)
Quarter: 2012Q2

REPORT INFORMATION
  Report Type: 
  Country: None (occurrence: None)
  Receive Date: 20120405
  Receipt Date: 20100823
  Transmission Date: 20120825
  Serious: Yes (Disabling)
  Sender: FDA-Public Use
  Company Number: PHHY2010US28975

PATIENT
  Age: 77 Year
  Sex: Female
  Weight: 62 kg

DRUGS (2)
  1. RECLAST [Suspect]
     Indication: OSTEOPOROSIS
     Dosage: ONCE YEARLY, IV INFUSION
     Route: 042
     Dates: start: 20090712
  2. CALCIUM [Concomitant]

REACTIONS (11)
  - NERVOUSNESS [None]
  - PALPITATIONS [None]
  - TREMOR [None]
  - OVERDOSE [None]
  - VISION BLURRED [None]
  - HEADACHE [None]
  - ANXIETY [None]
  - AMNESIA [None]
  - DIPLOPIA [None]
  - DIZZINESS [None]
  - DYSPNOEA [None]
